FAERS Safety Report 19141674 (Version 1)
Quarter: 2021Q2

REPORT INFORMATION
  Report Type: Spontaneous
  Country: US (occurrence: US)
  Receive Date: 20210415
  Receipt Date: 20210415
  Transmission Date: 20210717
  Serious: No
  Sender: FDA-Public Use
  Company Number: NVSC2021US082072

PATIENT
  Sex: Male

DRUGS (1)
  1. NEOMYCIN+POLY B SULFATE+ HYDROCORT [Suspect]
     Active Substance: HYDROCORTISONE\NEOMYCIN SULFATE\POLYMYXIN B SULFATE
     Indication: PRODUCT USED FOR UNKNOWN INDICATION
     Dosage: 1 DF, Q4H
     Route: 065

REACTIONS (3)
  - Incorrect dose administered [Unknown]
  - Product dose omission issue [Unknown]
  - Device issue [Unknown]
